FAERS Safety Report 5567017-5 (Version None)
Quarter: 2007Q4

REPORT INFORMATION
  Report Type: 
  Country: None (occurrence: None)
  Receive Date: 20071219
  Receipt Date: 20071210
  Transmission Date: 20080405
  Serious: No
  Sender: FDA-Public Use
  Company Number: DE-ELI_LILLY_AND_COMPANY-DE200711005383

PATIENT
  Sex: Female
  Weight: 72 kg

DRUGS (1)
  1. DULOXETINE HYDROCHLORIDE [Suspect]
     Dosage: UNK, UNKNOWN
     Route: 048

REACTIONS (3)
  - FALL [None]
  - FATIGUE [None]
  - PRURITUS [None]
